FAERS Safety Report 4611362-4 (Version None)
Quarter: 2005Q1

REPORT INFORMATION
  Report Type: 
  Country: None (occurrence: None)
  Receive Date: 20050317
  Receipt Date: 20050308
  Transmission Date: 20050727
  Serious: Yes (Hospitalization)
  Sender: FDA-Public Use
  Company Number: US-BRISTOL-MYERS SQUIBB COMPANY-12889655

PATIENT
  Age: 82 Year
  Sex: Female
  Weight: 74 kg

DRUGS (10)
  1. COUMADIN [Suspect]
     Indication: DEEP VEIN THROMBOSIS
     Dates: start: 20030609
  2. IODINE [Suspect]
  3. DYRENIUM [Concomitant]
  4. FOLIC ACID [Concomitant]
  5. VITAMIN D [Concomitant]
  6. MICRO-K [Concomitant]
  7. HYDROCHLOROTHIAZIDE [Concomitant]
  8. KAOLIN [Concomitant]
  9. SYNTHROID [Concomitant]
     Dosage: STRENGTH = 0.05 MG
  10. ACETAMINOPHEN [Concomitant]
     Dosage: 1-8 TABLETS DAILY

REACTIONS (3)
  - ATRIAL FIBRILLATION [None]
  - CONSTIPATION [None]
  - IODINE ALLERGY [None]
